FAERS Safety Report 4967369-0 (Version None)
Quarter: 2006Q2

REPORT INFORMATION
  Report Type: 
  Country: None (occurrence: None)
  Receive Date: 20060404
  Receipt Date: 20060324
  Transmission Date: 20061013
  Serious: Yes (Hospitalization)
  Sender: FDA-Public Use
  Company Number: FABR-11458

PATIENT
  Age: 50 Year
  Sex: Male
  Weight: 65 kg

DRUGS (14)
  1. FABRAZYME [Suspect]
     Indication: FABRY'S DISEASE
     Dosage: 65 MG Q2WKS IV
     Route: 042
     Dates: start: 20060322
  2. SYNTHROID [Concomitant]
  3. AMIODARONE HCL [Concomitant]
  4. ASPIRIN [Concomitant]
  5. LASIX [Concomitant]
  6. INSPRA [Concomitant]
  7. DIGOXIN [Concomitant]
  8. TOPROL-XL [Concomitant]
  9. ADVAIR DISKUS 100/50 [Concomitant]
  10. FERROUS SULFATE TAB [Concomitant]
  11. ARANESP [Concomitant]
  12. SENNA TABLETS [Concomitant]
  13. ATARAX [Concomitant]
  14. COUMADIN [Concomitant]

REACTIONS (2)
  - CARDIAC FAILURE CONGESTIVE [None]
  - FLUID OVERLOAD [None]
